FAERS Safety Report 20748786 (Version 1)
Quarter: 2022Q2

REPORT INFORMATION
  Report Type: Spontaneous
  Country: US (occurrence: US)
  Receive Date: 20220426
  Receipt Date: 20220426
  Transmission Date: 20220720
  Serious: Yes (Other)
  Sender: FDA-Public Use
  Company Number: US-GILEAD-2022-0578678

PATIENT
  Sex: Male

DRUGS (2)
  1. EPCLUSA [Suspect]
     Active Substance: SOFOSBUVIR\VELPATASVIR
     Indication: Hepatitis C
     Route: 065
  2. COLCHICINE [Concomitant]
     Active Substance: COLCHICINE

REACTIONS (3)
  - Neoplasm malignant [Unknown]
  - Pericarditis [Unknown]
  - Ill-defined disorder [Unknown]
